FAERS Safety Report 8205084-0 (Version None)
Quarter: 2012Q1

REPORT INFORMATION
  Report Type: 
  Country: None (occurrence: None)
  Receive Date: 20120313
  Receipt Date: 20120227
  Transmission Date: 20120608
  Serious: Yes (Death)
  Sender: FDA-Public Use
  Company Number: JP-ROCHE-1045531

PATIENT
  Age: 72 Year
  Sex: Male

DRUGS (4)
  1. GLYCEOL [Concomitant]
     Route: 041
     Dates: start: 20111009, end: 20111011
  2. INSULIN [Concomitant]
  3. ALTEPLASE [Suspect]
     Indication: EMBOLIC STROKE
     Route: 042
     Dates: start: 20111008, end: 20111008
  4. EDARAVONE [Suspect]
     Indication: PRODUCT USED FOR UNKNOWN INDICATION
     Route: 041
     Dates: start: 20111008, end: 20111011

REACTIONS (2)
  - DEATH [None]
  - HAEMORRHAGIC INFARCTION [None]
